FAERS Safety Report 10471752 (Version 3)
Quarter: 2020Q3

REPORT INFORMATION
  Report Type: Spontaneous
  Country: FR (occurrence: FR)
  Receive Date: 20140923
  Receipt Date: 20200826
  Transmission Date: 20201102
  Serious: Yes (Death, Hospitalization, Other)
  Sender: FDA-Public Use
  Company Number: PHHY2014FR122018

PATIENT
  Age: 20 Year
  Sex: Male

DRUGS (15)
  1. PREDNISONE. [Suspect]
     Active Substance: PREDNISONE
     Indication: HODGKIN^S DISEASE
     Dosage: UNK
     Route: 065
  2. PROPOFOL. [Suspect]
     Active Substance: PROPOFOL
     Indication: SEDATION
     Dosage: UNK (HIGH DOSE)
     Route: 042
  3. PROCARBAZINE [Suspect]
     Active Substance: PROCARBAZINE
     Indication: HODGKIN^S DISEASE STAGE IV
     Dosage: UNK, QCY
     Route: 065
  4. ETOPOSIDE. [Suspect]
     Active Substance: ETOPOSIDE
     Indication: HODGKIN^S DISEASE STAGE IV
     Dosage: UNK UNK, QCY
     Route: 065
  5. CYCLOPHOSPHAMIDE. [Suspect]
     Active Substance: CYCLOPHOSPHAMIDE
     Dosage: POWDER FOR SOLUTION FOR INJECTION; CYCLIC
     Route: 065
  6. VINCRISTINE SULFATE. [Suspect]
     Active Substance: VINCRISTINE SULFATE
     Dosage: UNK UNK, CYCLIC
     Route: 065
  7. IMMUNOGLOBULINS (HUMAN) [Suspect]
     Active Substance: HUMAN IMMUNOGLOBULIN G
     Indication: PRODUCT USED FOR UNKNOWN INDICATION
     Dosage: 1 G/KG
     Route: 065
  8. CYCLOPHOSPHAMIDE. [Suspect]
     Active Substance: CYCLOPHOSPHAMIDE
     Indication: HODGKIN^S DISEASE STAGE IV
     Dosage: UNK
     Route: 065
  9. RIBAVARIN [Suspect]
     Active Substance: RIBAVIRIN
     Indication: PRODUCT USED FOR UNKNOWN INDICATION
     Dosage: 20 MG/KG, PER DAY
     Route: 042
  10. PROCARBAZINE [Suspect]
     Active Substance: PROCARBAZINE
     Indication: HODGKIN^S DISEASE
     Dosage: UNK
     Route: 065
  11. PREDNISONE. [Suspect]
     Active Substance: PREDNISONE
     Indication: HODGKIN^S DISEASE STAGE IV
     Dosage: UNK UNK, QCY
     Route: 065
  12. DOXORUBICIN [Suspect]
     Active Substance: DOXORUBICIN
     Indication: HODGKIN^S DISEASE STAGE IV
     Dosage: UNK
     Route: 065
  13. DOXORUBICIN [Suspect]
     Active Substance: DOXORUBICIN
     Dosage: UNK UNK, CYCLIC
     Route: 065
  14. VINCRISTINE SULFATE. [Suspect]
     Active Substance: VINCRISTINE SULFATE
     Indication: HODGKIN^S DISEASE STAGE IV
     Dosage: UNK
     Route: 065
  15. BLEOMYCIN [Suspect]
     Active Substance: BLEOMYCIN SULFATE
     Indication: HODGKIN^S DISEASE STAGE IV
     Dosage: UNK UNK,UNK
     Route: 065

REACTIONS (23)
  - Pyrexia [Fatal]
  - Lung infiltration [Fatal]
  - Pseudomonas infection [Unknown]
  - Pneumonia measles [Fatal]
  - Oropharyngeal pain [Fatal]
  - Pneumonitis [Fatal]
  - Hypotension [Fatal]
  - Conjunctivitis [Fatal]
  - Metabolic acidosis [Fatal]
  - Measles [Fatal]
  - Propofol infusion syndrome [Fatal]
  - Dyspnoea [Fatal]
  - Bronchitis [Fatal]
  - Malaise [Fatal]
  - Febrile neutropenia [Unknown]
  - Rhinitis [Fatal]
  - Rash erythematous [Fatal]
  - Drug ineffective [Unknown]
  - Leukopenia [Fatal]
  - Acute respiratory failure [Fatal]
  - Renal failure [Fatal]
  - Bronchopulmonary aspergillosis [Unknown]
  - Hodgkin^s disease stage IV [Unknown]
